FAERS Safety Report 5507579-7 (Version None)
Quarter: 2007Q4

REPORT INFORMATION
  Report Type: 
  Country: None (occurrence: None)
  Receive Date: 20071102
  Receipt Date: 20071017
  Transmission Date: 20080405
  Serious: Yes (Other)
  Sender: FDA-Public Use
  Company Number: VNL_00799_2007

PATIENT
  Sex: Female

DRUGS (9)
  1. APO-GO (APO-GO PFS 5 MG/ML SOLUTION FOR INFUSION IN PRE-FILLED SYRINGE [Suspect]
     Indication: PARKINSON'S DISEASE
     Dosage: (100 MG PER DAY SUBCUTANENOUS)
     Route: 058
     Dates: start: 20061024
  2. CO-BENELDOPA (MADOPAR DISPERSIBLE (CO-BENELDOPA)) [Suspect]
     Indication: PARKINSON'S DISEASE
     Dosage: (250 MG ORAL)
     Route: 048
  3. SINEMET-PLUS (SINEMET PLUS (CO-CARELDOPA)) (NOT SPECIFIED) [Suspect]
     Indication: PARKINSON'S DISEASE
     Dosage: (375 MG ORAL)
     Route: 048
  4. SINEMET CR [Suspect]
     Indication: PARKINSON'S DISEASE
     Dosage: (250 MG ORAL)
     Route: 048
  5. PRAMIPEXOLE (UNKNOWN UNTIL UNKNOWN) [Concomitant]
  6. AMITRIPTYLINE (UNKNOWN UNTIL UNKNOWN) [Concomitant]
  7. ATENOLOL (UNKNOWN UNTIL UNKNOWN) [Concomitant]
  8. LISINOPRIL (UNKNOWN UNTIL UNKNOWN) [Concomitant]
  9. METFORMIN (UNKNOWN UNTIL UNKNOWN) [Concomitant]

REACTIONS (10)
  - BLOOD BILIRUBIN ABNORMAL [None]
  - COOMBS DIRECT TEST POSITIVE [None]
  - FALL [None]
  - GAIT DISTURBANCE [None]
  - HAEMATOCRIT DECREASED [None]
  - HAEMOGLOBIN DECREASED [None]
  - MEAN CELL HAEMOGLOBIN DECREASED [None]
  - RED CELL DISTRIBUTION WIDTH INCREASED [None]
  - RETICULOCYTE COUNT INCREASED [None]
  - SOMNOLENCE [None]
